FAERS Safety Report 21779069 (Version 1)
Quarter: 2022Q4

REPORT INFORMATION
  Report Type: Report from Study
  Country: BR (occurrence: BR)
  Receive Date: 20221226
  Receipt Date: 20221226
  Transmission Date: 20230112
  Serious: Yes (Other)
  Sender: FDA-Public Use
  Company Number: BR-009507513-2212BRA008527

PATIENT
  Age: 64 Year
  Sex: Female
  Weight: 63.8 kg

DRUGS (6)
  1. JANUMET [Suspect]
     Active Substance: METFORMIN HYDROCHLORIDE\SITAGLIPTIN PHOSPHATE
     Indication: Type 2 diabetes mellitus
     Dosage: 1 TABLET IN THE MORNING AND OTHER AT NIGHT, STRENGTH: 50/850 MG
     Route: 048
     Dates: start: 201612, end: 20221219
  2. SIMVASTATIN [Concomitant]
     Active Substance: SIMVASTATIN
     Indication: Blood cholesterol abnormal
     Dosage: 20 MG AT NIGHT (ALSO REPORTED AS DAILY [QD])
  3. MICARDIS [Concomitant]
     Active Substance: TELMISARTAN
     Indication: Hypertension
     Dosage: 80 MILLIGRAM
  4. INDAPAMIDE [Concomitant]
     Active Substance: INDAPAMIDE
     Indication: Polyuria
     Dosage: 1.5 MILLIGRAM
     Dates: start: 2021
  5. LETROZOLE [Concomitant]
     Active Substance: LETROZOLE
     Dosage: 2.5 MILLIGRAM
  6. FIXARE PRO+ [Concomitant]
     Dosage: UNK

REACTIONS (2)
  - Breast cancer [Unknown]
  - Intentional dose omission [Unknown]

NARRATIVE: CASE EVENT DATE: 20200506
